FAERS Safety Report 12995106 (Version 1)
Quarter: 2016Q4

REPORT INFORMATION
  Report Type: Spontaneous
  Country: US (occurrence: US)
  Receive Date: 20161202
  Receipt Date: 20161202
  Transmission Date: 20170207
  Serious: No
  Sender: FDA-Public Use
  Company Number: US-PFIZER INC-2016506233

PATIENT
  Age: 73 Year
  Sex: Female
  Weight: 75.47 kg

DRUGS (8)
  1. COREG [Concomitant]
     Active Substance: CARVEDILOL
     Dosage: UNK
     Route: 048
  2. LOSARTAN. [Concomitant]
     Active Substance: LOSARTAN
     Dosage: UNK
     Route: 048
  3. VITAMIN E [Concomitant]
     Active Substance: .ALPHA.-TOCOPHEROL
     Dosage: UNK
     Route: 048
  4. AROMASIN [Suspect]
     Active Substance: EXEMESTANE
     Indication: INTRADUCTAL PROLIFERATIVE BREAST LESION
     Dosage: 25 MG, DAILY
     Route: 048
     Dates: start: 201212
  5. GABAPENTIN. [Concomitant]
     Active Substance: GABAPENTIN
     Dosage: UNK
     Route: 048
  6. AROMASIN [Suspect]
     Active Substance: EXEMESTANE
     Indication: BREAST CANCER
  7. VITAMIN C [Concomitant]
     Active Substance: ASCORBIC ACID
     Dosage: UNK
     Route: 048
  8. VITAMIN D [Concomitant]
     Active Substance: CHOLECALCIFEROL
     Dosage: UNK, DAILY
     Route: 048

REACTIONS (3)
  - Hypercalcaemia [Unknown]
  - Product use issue [Unknown]
  - Osteopenia [Unknown]

NARRATIVE: CASE EVENT DATE: 201212
